FAERS Safety Report 9682161 (Version 1)
Quarter: 2013Q4

REPORT INFORMATION
  Report Type: Spontaneous
  Country: US (occurrence: US)
  Receive Date: 20131111
  Receipt Date: 20131111
  Transmission Date: 20140711
  Serious: Yes (Hospitalization)
  Sender: FDA-Public Use
  Company Number: US-RB-060333-13

PATIENT
  Age: 36 Year
  Sex: Male

DRUGS (2)
  1. SUBOXONE FILM [Suspect]
     Indication: DRUG DEPENDENCE
     Dosage: SUBOXONE FILM
     Route: 060
     Dates: start: 2010, end: 2013
  2. SUBOXONE FILM [Suspect]
     Route: 060
     Dates: start: 2013, end: 20131025

REACTIONS (3)
  - Drug withdrawal syndrome [Recovered/Resolved]
  - Back disorder [Recovered/Resolved]
  - Drug ineffective [Not Recovered/Not Resolved]
